FAERS Safety Report 16543844 (Version 2)
Quarter: 2019Q3

REPORT INFORMATION
  Report Type: Spontaneous
  Country: ES (occurrence: ES)
  Receive Date: 20190709
  Receipt Date: 20190716
  Transmission Date: 20191004
  Serious: Yes (Other)
  Sender: FDA-Public Use
  Company Number: ES-PFIZER INC-2019287733

PATIENT
  Age: 56 Year
  Sex: Male

DRUGS (6)
  1. PANTECTA [Suspect]
     Active Substance: PANTOPRAZOLE SODIUM
     Dosage: 20 MILLIGRAM, QD
     Route: 065
     Dates: start: 20180516
  2. ADVAGRAF [Concomitant]
     Active Substance: TACROLIMUS
     Indication: LIVER TRANSPLANT
     Dosage: 4 MILLIGRAM, QD
     Dates: start: 20180516
  3. CEMIDON [Suspect]
     Active Substance: ISONIAZID
     Indication: LATENT TUBERCULOSIS
     Dosage: 300 MILLIGRAM, QD
     Route: 048
     Dates: start: 20180715, end: 20190205
  4. TENOFOVIR [Suspect]
     Active Substance: TENOFOVIR
     Dosage: 245 MILLIGRAM, QD
     Route: 065
  5. CELLCEPT [Suspect]
     Active Substance: MYCOPHENOLATE MOFETIL\MYCOPHENOLATE MOFETIL HYDROCHLORIDE
     Indication: LIVER TRANSPLANT
     Dosage: 1000 MILLIGRAM, QD
     Route: 065
     Dates: start: 20180516
  6. UROREC [Suspect]
     Active Substance: SILODOSIN
     Dosage: 4 MILLIGRAM, QD
     Route: 065

REACTIONS (1)
  - Blood bilirubin increased [Recovering/Resolving]

NARRATIVE: CASE EVENT DATE: 20190201
